FAERS Safety Report 15029302 (Version 2)
Quarter: 2018Q2

REPORT INFORMATION
  Report Type: Spontaneous
  Country: US (occurrence: US)
  Receive Date: 20180619
  Receipt Date: 20180622
  Transmission Date: 20180711
  Serious: Yes (Hospitalization, Other)
  Sender: FDA-Public Use
  Company Number: US-LUNDBECK-DKLU2050198

PATIENT
  Sex: Female
  Weight: 14 kg

DRUGS (16)
  1. SABRIL [Suspect]
     Active Substance: VIGABATRIN
     Indication: INFANTILE SPASMS
     Route: 065
     Dates: start: 20161220
  2. ONFI [Concomitant]
     Active Substance: CLOBAZAM
     Route: 048
  3. SABRIL [Suspect]
     Active Substance: VIGABATRIN
     Route: 048
     Dates: start: 20180606
  4. SABRIL [Suspect]
     Active Substance: VIGABATRIN
     Route: 048
  5. KEPPRA [Concomitant]
     Active Substance: LEVETIRACETAM
     Indication: PRODUCT USED FOR UNKNOWN INDICATION
     Route: 048
  6. SABRIL [Suspect]
     Active Substance: VIGABATRIN
     Route: 065
  7. ONFI [Concomitant]
     Active Substance: CLOBAZAM
     Route: 048
     Dates: start: 20180606
  8. CIPRODEX [Concomitant]
     Active Substance: CIPROFLOXACIN HYDROCHLORIDE\DEXAMETHASONE
     Indication: PRODUCT USED FOR UNKNOWN INDICATION
     Route: 001
  9. ONFI [Concomitant]
     Active Substance: CLOBAZAM
     Route: 048
  10. IBUPROFEN. [Concomitant]
     Active Substance: IBUPROFEN
     Indication: PRODUCT USED FOR UNKNOWN INDICATION
     Route: 048
  11. CHILDRENS TYLENOL [Concomitant]
     Active Substance: ACETAMINOPHEN
     Indication: PRODUCT USED FOR UNKNOWN INDICATION
     Route: 048
  12. OFLOXACIN. [Concomitant]
     Active Substance: OFLOXACIN
     Indication: PRODUCT USED FOR UNKNOWN INDICATION
     Route: 047
  13. SABRIL [Suspect]
     Active Substance: VIGABATRIN
     Route: 048
     Dates: start: 20180606
  14. ONFI [Concomitant]
     Active Substance: CLOBAZAM
     Indication: PRODUCT USED FOR UNKNOWN INDICATION
     Route: 048
  15. ONFI [Concomitant]
     Active Substance: CLOBAZAM
     Route: 048
  16. DIASTAT PEDIATRIC [Concomitant]
     Indication: SEIZURE
     Route: 054

REACTIONS (2)
  - Seizure [Unknown]
  - Sleep apnoea syndrome [Recovered/Resolved]
